FAERS Safety Report 19381752 (Version 1)
Quarter: 2021Q2

REPORT INFORMATION
  Report Type: Spontaneous
  Country: CA (occurrence: CA)
  Receive Date: 20210607
  Receipt Date: 20210607
  Transmission Date: 20210717
  Serious: Yes (Hospitalization)
  Sender: FDA-Public Use
  Company Number: CA-VERTEX PHARMACEUTICALS-2021-008626

PATIENT
  Age: 66 Year
  Sex: Female
  Weight: 35 kg

DRUGS (12)
  1. VENTOLIN [Concomitant]
     Active Substance: ALBUTEROL SULFATE
     Dosage: AS NEEDED
  2. PULMOZYME [Concomitant]
     Active Substance: DORNASE ALFA
     Dosage: 2.5 IN NEBULIZATION, QD
  3. CREON [Concomitant]
     Active Substance: PANCRELIPASE AMYLASE\PANCRELIPASE LIPASE\PANCRELIPASE PROTEASE
     Dosage: 12 CAPSULES AT SNACKS AND 2 CAPSULES TID
  4. TYLENOL [Concomitant]
     Active Substance: ACETAMINOPHEN
     Dosage: AS NEEDED
  5. VITAMIN A [RETINOL] [Concomitant]
     Active Substance: RETINOL
     Dosage: 10000 INTERNATIONAL UNIT, QD
  6. ALVESCO [Concomitant]
     Active Substance: CICLESONIDE
     Dosage: 200 1 INHALATION, QD
  7. CELEBREX [Concomitant]
     Active Substance: CELECOXIB
     Dosage: 200 MG, BID, PRN
  8. ATIVAN [Concomitant]
     Active Substance: LORAZEPAM
     Dosage: 1 MG HS, PRN
     Route: 048
  9. REMERON [Concomitant]
     Active Substance: MIRTAZAPINE
     Dosage: 7.5 HS
  10. SYMDEKO [Suspect]
     Active Substance: IVACAFTOR\TEZACAFTOR
     Indication: CYSTIC FIBROSIS
     Dosage: 100?150MG TABLET ONCE DAILY AND 150MG TABLET ONCE DAILY
     Route: 048
     Dates: start: 20190225
  11. PANTOLOC [Concomitant]
     Active Substance: PANTOPRAZOLE SODIUM
     Dosage: 40, BID
  12. VITAMIN D [COLECALCIFEROL] [Concomitant]
     Active Substance: CHOLECALCIFEROL
     Dosage: 10 000 ONCE PER WEEK

REACTIONS (3)
  - General physical health deterioration [Unknown]
  - Forced expiratory volume abnormal [Unknown]
  - Superinfection [Unknown]

NARRATIVE: CASE EVENT DATE: 2021
